FAERS Safety Report 13234573 (Version 1)
Quarter: 2017Q1

REPORT INFORMATION
  Report Type: Spontaneous
  Country: GB (occurrence: GB)
  Receive Date: 20170215
  Receipt Date: 20170215
  Transmission Date: 20170428
  Serious: Yes (Death, Other)
  Sender: FDA-Public Use
  Company Number: GB-AMGEN-GBRSP2017017890

PATIENT
  Sex: Male

DRUGS (1)
  1. ARANESP [Suspect]
     Active Substance: DARBEPOETIN ALFA
     Indication: PRODUCT USED FOR UNKNOWN INDICATION
     Dosage: 60 MG/0.3ML, UNK
     Route: 065

REACTIONS (4)
  - Anaemia [Unknown]
  - Dehydration [Unknown]
  - Renal disorder [Fatal]
  - Amnesia [Not Recovered/Not Resolved]
